FAERS Safety Report 9984000 (Version 1)
Quarter: 2014Q1

REPORT INFORMATION
  Report Type: Report from Study
  Country: US (occurrence: US)
  Receive Date: 20140307
  Receipt Date: 20140307
  Transmission Date: 20141002
  Serious: No
  Sender: FDA-Public Use
  Company Number: US-ABBVIE-13P-163-1184352-00

PATIENT
  Age: 67 Year
  Sex: Male
  Weight: 82.63 kg

DRUGS (10)
  1. HUMIRA [Suspect]
     Indication: RHEUMATOID ARTHRITIS
     Route: 058
     Dates: start: 20131230
  2. MEDROL [Concomitant]
     Indication: RHEUMATOID ARTHRITIS
  3. SPIRONOLACTON [Concomitant]
     Indication: ATRIAL FIBRILLATION
  4. TYLENOL [Concomitant]
     Indication: RHEUMATOID ARTHRITIS
  5. IBUPROFEN [Concomitant]
     Indication: RHEUMATOID ARTHRITIS
  6. CALCIUM [Concomitant]
     Indication: MINERAL SUPPLEMENTATION
  7. MAGNESIUM [Concomitant]
     Indication: CONSTIPATION
  8. IRON [Concomitant]
     Indication: MINERAL SUPPLEMENTATION
  9. BABY ASPIRIN [Concomitant]
     Indication: PROPHYLAXIS
  10. OMEPRAZOLE [Concomitant]
     Indication: GASTROOESOPHAGEAL REFLUX DISEASE

REACTIONS (1)
  - Injection site pain [Recovered/Resolved]
